FAERS Safety Report 9460111 (Version 1)
Quarter: 2013Q3

REPORT INFORMATION
  Report Type: Spontaneous
  Country: PT (occurrence: PT)
  Receive Date: 20130815
  Receipt Date: 20130815
  Transmission Date: 20140515
  Serious: Yes (Other)
  Sender: FDA-Public Use
  Company Number: PHHY2013PT086436

PATIENT
  Age: 52 Year
  Sex: Male

DRUGS (2)
  1. AZITHROMYCIN [Suspect]
     Indication: TONSILLITIS
     Dosage: 500 MG DAILY
     Route: 048
     Dates: start: 20130719
  2. NIMESULIDE [Concomitant]
     Indication: TONSILLITIS

REACTIONS (16)
  - Discomfort [Recovering/Resolving]
  - Feeling abnormal [Recovering/Resolving]
  - Photosensitivity reaction [Unknown]
  - Conjunctivitis [Recovering/Resolving]
  - Local swelling [Recovering/Resolving]
  - Pain [Unknown]
  - Pyrexia [Unknown]
  - Hyperhidrosis [Unknown]
  - Erythema [Recovering/Resolving]
  - Infection [Unknown]
  - Inflammation [Unknown]
  - Skin odour abnormal [Unknown]
  - Autoimmune disorder [Unknown]
  - Condition aggravated [Unknown]
  - Hepatomegaly [Unknown]
  - Drug hypersensitivity [Unknown]
